FAERS Safety Report 19323204 (Version 1)
Quarter: 2021Q2

REPORT INFORMATION
  Report Type: Spontaneous
  Country: DE (occurrence: DE)
  Receive Date: 20210528
  Receipt Date: 20210528
  Transmission Date: 20210717
  Serious: Yes (Hospitalization)
  Sender: FDA-Public Use
  Company Number: DE-ACCORD-226379

PATIENT
  Age: 65 Year
  Sex: Male

DRUGS (10)
  1. METHOTREXATE. [Suspect]
     Active Substance: METHOTREXATE
     Indication: PRODUCT USED FOR UNKNOWN INDICATION
     Dosage: 15 MG / WEEK, 1X THURSDAY
  2. FOLIC ACID. [Concomitant]
     Active Substance: FOLIC ACID
     Dosage: 5 MG / WEEK, 1X ON FRIDAY
  3. PREDNISOLONE. [Concomitant]
     Active Substance: PREDNISOLONE
     Dosage: REQUIREMENT
  4. TIM?OPHTAL [Concomitant]
     Active Substance: TIMOLOL MALEATE
     Dosage: 0.25%, 1?0?0?0, DROPS
     Route: 047
  5. TAFLOT [Concomitant]
     Dosage: 0?0?1?0, DROPS
     Route: 047
  6. ACETYLSALICYLIC ACID [Concomitant]
     Active Substance: ASPIRIN
     Dosage: 100 MG, 0?1?0?0
  7. METOPROLOL. [Concomitant]
     Active Substance: METOPROLOL
     Dosage: 23.75 MG, 0?0?0.5?0
  8. CLOPIDOGREL [Concomitant]
     Active Substance: CLOPIDOGREL BISULFATE
     Dosage: 75 MG, 1?0?0?0
  9. OLUMIANT [Concomitant]
     Active Substance: BARICITINIB
     Dosage: 4 MG, 1?0?0?0
  10. SIMVASTATIN. [Concomitant]
     Active Substance: SIMVASTATIN
     Dosage: 10 MG, 0?0?1?0

REACTIONS (2)
  - Dyspnoea exertional [Recovered/Resolved]
  - Angina pectoris [Recovered/Resolved]
